FAERS Safety Report 4614748-7 (Version None)
Quarter: 2005Q1

REPORT INFORMATION
  Report Type: 
  Country: None (occurrence: None)
  Receive Date: 20050322
  Receipt Date: 20040720
  Transmission Date: 20050727
  Serious: Yes (Hospitalization, Other)
  Sender: FDA-Public Use
  Company Number: FR-ABBOTT-04P-056-0267711-00

PATIENT
  Age: 13 Year
  Sex: Male

DRUGS (5)
  1. ZECLAR [Suspect]
     Indication: NASOPHARYNGITIS
     Dates: start: 20040501
  2. IBUPROFEN [Suspect]
     Indication: NASOPHARYNGITIS
     Dates: start: 20040501
  3. CORTANCYL [Suspect]
     Indication: NEPHROTIC SYNDROME
     Route: 048
     Dates: start: 20040101
  4. CELLCEPT [Suspect]
     Indication: NEPHROTIC SYNDROME
     Route: 048
     Dates: start: 20010101, end: 20040101
  5. CELLCEPT [Suspect]
     Dates: start: 20040101

REACTIONS (5)
  - ANURIA [None]
  - INFECTION [None]
  - PHIMOSIS [None]
  - PRIAPISM [None]
  - PYREXIA [None]
